FAERS Safety Report 20150114 (Version 3)
Quarter: 2022Q1

REPORT INFORMATION
  Report Type: Other
  Country: US (occurrence: None)
  Receive Date: 20211206
  Receipt Date: 20220112
  Transmission Date: 20220423
  Serious: Yes (Death, Other)
  Sender: FDA-Public Use
  Company Number: US-ROCHE-2971483

PATIENT

DRUGS (6)
  1. OBINUTUZUMAB [Suspect]
     Active Substance: OBINUTUZUMAB
     Indication: Chronic lymphocytic leukaemia
     Dosage: ON DAY 1 (100 MG ON DAY 1 AND 900 MG ON DAY 2 OF CYCLE 1 FOR AN ABSOLUTE LYMPHOCYTE COUNT }25 000 CE
     Route: 042
  2. OBINUTUZUMAB [Suspect]
     Active Substance: OBINUTUZUMAB
     Indication: Lymphocytic lymphoma
  3. VENETOCLAX [Suspect]
     Active Substance: VENETOCLAX
     Indication: Chronic lymphocytic leukaemia
     Dosage: DAY 1 OF CYCLE 3 WITH A 5 WEEK RAMP UP TO 400 MG ADMINISTERED ORALLY PER DAY (20 MG, 50 MG, 100 MG,
     Route: 048
  4. VENETOCLAX [Suspect]
     Active Substance: VENETOCLAX
     Indication: Lymphocytic lymphoma
  5. ZANUBRUTINIB [Suspect]
     Active Substance: ZANUBRUTINIB
     Indication: Lymphocytic lymphoma
     Dosage: ON DAY 1 OF CYCLE 1.
     Route: 048
  6. ZANUBRUTINIB [Suspect]
     Active Substance: ZANUBRUTINIB
     Indication: Chronic lymphocytic leukaemia

REACTIONS (16)
  - Haemorrhage intracranial [Fatal]
  - Thrombocytopenia [Unknown]
  - Fatigue [Unknown]
  - Neutropenia [Unknown]
  - Infusion related reaction [Unknown]
  - Rash [Unknown]
  - Blood alkaline phosphatase increased [Unknown]
  - Pneumonia [Unknown]
  - Stomatitis [Unknown]
  - Skin infection [Unknown]
  - Blood bilirubin increased [Unknown]
  - Febrile neutropenia [Unknown]
  - Cardiac failure [Unknown]
  - Hypophosphataemia [Unknown]
  - Transaminases increased [Unknown]
  - Pyrexia [Unknown]
